FAERS Safety Report 18519577 (Version 1)
Quarter: 2020Q4

REPORT INFORMATION
  Report Type: Spontaneous
  Country: US (occurrence: US)
  Receive Date: 20201119
  Receipt Date: 20201119
  Transmission Date: 20210114
  Serious: No
  Sender: FDA-Public Use
  Company Number: US-CIPLA LTD.-2020US02651

PATIENT

DRUGS (3)
  1. ATORVASTATIN [Concomitant]
     Active Substance: ATORVASTATIN
     Indication: BLOOD CHOLESTEROL ABNORMAL
     Dosage: 20 MILLIGRAM, QD (ONCE AT NIGHT/ EVENING) FROM LONG BACK (MANUFACTURED BY BIOCON PHARMA)
     Route: 065
  2. GABAPENTIN. [Suspect]
     Active Substance: GABAPENTIN
     Indication: INSOMNIA
     Dosage: 300 MILLIGRAM, QD (ONE CAPSULE AT NIGHT EVERY DAY)
     Route: 048
     Dates: start: 201811
  3. FINASTERIDE. [Concomitant]
     Active Substance: FINASTERIDE
     Indication: PROSTATOMEGALY
     Dosage: 5 MILLIGRAM, QD (ONCE AT NIGHT/ BEDTIME) FROM PAST 20 YEARS (MANUFACTURED BY AUROBINDO PHARMA)
     Route: 065

REACTIONS (2)
  - Off label use [Unknown]
  - Product use in unapproved indication [Unknown]

NARRATIVE: CASE EVENT DATE: 201811
